FAERS Safety Report 7087690-2 (Version None)
Quarter: 2010Q4

REPORT INFORMATION
  Report Type: 
  Country: None (occurrence: None)
  Receive Date: 20101108
  Receipt Date: 20101028
  Transmission Date: 20110411
  Serious: No
  Sender: FDA-Public Use
  Company Number: US-BIOGENIDEC-2010BI038455

PATIENT
  Sex: Male

DRUGS (1)
  1. TYSABRI [Suspect]
     Indication: MULTIPLE SCLEROSIS
     Route: 042
     Dates: start: 20080609

REACTIONS (8)
  - ASTHENIA [None]
  - DIABETES MELLITUS [None]
  - DIZZINESS [None]
  - EYE DISORDER [None]
  - HYPOAESTHESIA [None]
  - MULTIPLE SCLEROSIS RELAPSE [None]
  - NEUROPATHY PERIPHERAL [None]
  - WEIGHT DECREASED [None]
